FAERS Safety Report 20013998 (Version 2)
Quarter: 2021Q4

REPORT INFORMATION
  Report Type: Spontaneous
  Country: SI (occurrence: SI)
  Receive Date: 20211029
  Receipt Date: 20211203
  Transmission Date: 20220303
  Serious: Yes (Other)
  Sender: FDA-Public Use
  Company Number: SI-BAYER-2021A235933

PATIENT
  Sex: Male

DRUGS (1)
  1. ADEMPAS [Suspect]
     Active Substance: RIOCIGUAT
     Indication: Pulmonary hypertension
     Dosage: UNK
     Dates: start: 20191220

REACTIONS (4)
  - Autoimmune haemolytic anaemia [Not Recovered/Not Resolved]
  - Right ventricular failure [None]
  - Dyspnoea [None]
  - Peripheral swelling [None]

NARRATIVE: CASE EVENT DATE: 20210602
